FAERS Safety Report 8337437-4 (Version None)
Quarter: 2012Q2

REPORT INFORMATION
  Report Type: 
  Country: None (occurrence: None)
  Receive Date: 20120504
  Receipt Date: 20120423
  Transmission Date: 20120825
  Serious: Yes (Hospitalization)
  Sender: FDA-Public Use
  Company Number: US-ROCHE-1011424

PATIENT
  Sex: Female

DRUGS (3)
  1. RIBAVIRIN [Suspect]
     Indication: HEPATITIS C
     Route: 048
     Dates: start: 20111020
  2. INCIVEK [Suspect]
     Indication: HEPATITIS C
     Dates: start: 20111020
  3. PEGASYS [Suspect]
     Indication: HEPATITIS C
     Route: 058
     Dates: start: 20111020

REACTIONS (7)
  - PAIN [None]
  - PNEUMONIA [None]
  - ASTHENIA [None]
  - VOMITING [None]
  - ANAEMIA [None]
  - NERVOUS SYSTEM DISORDER [None]
  - ILL-DEFINED DISORDER [None]
